FAERS Safety Report 9207129 (Version 1)
Quarter: 2013Q1

REPORT INFORMATION
  Report Type: Spontaneous
  Country: US (occurrence: None)
  Receive Date: 20120718
  Receipt Date: 20120718
  Transmission Date: 20140127
  Serious: Yes (Hospitalization)
  Sender: FDA-Public Use
  Company Number: 163-50794-12041457

PATIENT
  Sex: Female

DRUGS (2)
  1. VIDAZA [Suspect]
     Indication: ACUTE MYELOID LEUKAEMIA
     Route: 058
  2. DEXAMETHASONE (DEXAMETHASONE)UNKNWON [Concomitant]

REACTIONS (2)
  - White blood cell count decreased [None]
  - Platelet count decreased [None]
